FAERS Safety Report 10514643 (Version 3)
Quarter: 2014Q4

REPORT INFORMATION
  Report Type: Spontaneous
  Country: AT (occurrence: AT)
  Receive Date: 20141013
  Receipt Date: 20141218
  Transmission Date: 20150528
  Serious: Yes (Life-Threatening, Other)
  Sender: FDA-Public Use
  Company Number: AT-ASTRAZENECA-2014SE76849

PATIENT
  Age: 74 Year
  Sex: Female

DRUGS (26)
  1. SOLIAN [Suspect]
     Active Substance: AMISULPRIDE
     Route: 065
     Dates: start: 20140303
  2. NEXIUM [Concomitant]
     Active Substance: ESOMEPRAZOLE MAGNESIUM
     Route: 048
     Dates: start: 201403
  3. UNASYN [Concomitant]
     Active Substance: AMPICILLIN SODIUM\SULBACTAM SODIUM
     Route: 065
     Dates: start: 20140417, end: 20140417
  4. ALDACTONE [Suspect]
     Active Substance: SPIRONOLACTONE
     Route: 065
     Dates: start: 20140404
  5. THIAMAZOL [Concomitant]
     Active Substance: METHIMAZOLE
     Dosage: 10 MG, MONDAY-WEDNESDAY-FRIDAY
     Route: 065
     Dates: start: 201402
  6. SEROQUEL [Suspect]
     Active Substance: QUETIAPINE FUMARATE
     Route: 048
     Dates: start: 20140218, end: 20140226
  7. SEROQUEL [Suspect]
     Active Substance: QUETIAPINE FUMARATE
     Route: 048
     Dates: start: 20140227, end: 20140403
  8. SEROQUEL [Suspect]
     Active Substance: QUETIAPINE FUMARATE
     Route: 048
     Dates: start: 20140404, end: 20140406
  9. SEROQUEL [Suspect]
     Active Substance: QUETIAPINE FUMARATE
     Route: 048
     Dates: start: 20140407, end: 20140409
  10. SOLIAN [Suspect]
     Active Substance: AMISULPRIDE
     Route: 065
     Dates: start: 20140405, end: 20140409
  11. LASIX [Suspect]
     Active Substance: FUROSEMIDE
     Route: 042
     Dates: start: 20140410
  12. THROMBO ASS [Concomitant]
     Active Substance: ASPIRIN
     Route: 065
     Dates: start: 201402
  13. SOLIAN [Suspect]
     Active Substance: AMISULPRIDE
     Route: 065
     Dates: start: 20140304, end: 20140403
  14. LASIX [Suspect]
     Active Substance: FUROSEMIDE
     Route: 042
     Dates: start: 201403, end: 20140407
  15. UNASYN [Concomitant]
     Active Substance: AMPICILLIN SODIUM\SULBACTAM SODIUM
     Route: 065
     Dates: start: 20140410, end: 20140410
  16. SOLIAN [Suspect]
     Active Substance: AMISULPRIDE
     Route: 065
     Dates: start: 20140410
  17. ACEMIN [Concomitant]
     Active Substance: LISINOPRIL
     Route: 065
     Dates: start: 201404, end: 20140409
  18. DIAMOX SEQUELS [Concomitant]
     Active Substance: ACETAZOLAMIDE
     Route: 042
     Dates: start: 20140410, end: 20140410
  19. ACEMIN [Concomitant]
     Active Substance: LISINOPRIL
     Route: 065
     Dates: start: 20140410
  20. LOVENOX [Concomitant]
     Active Substance: ENOXAPARIN SODIUM
     Route: 058
     Dates: start: 201403
  21. RINGER SOLUTION [Concomitant]
     Route: 042
     Dates: start: 201404
  22. SOLIAN [Suspect]
     Active Substance: AMISULPRIDE
     Route: 065
     Dates: start: 20140404, end: 20140404
  23. ALDACTONE [Suspect]
     Active Substance: SPIRONOLACTONE
     Route: 065
     Dates: start: 20140403, end: 20140403
  24. LASIX [Suspect]
     Active Substance: FUROSEMIDE
     Route: 042
     Dates: start: 20140408, end: 20140410
  25. CONCOR [Concomitant]
     Active Substance: BISOPROLOL FUMARATE
     Route: 065
     Dates: start: 201402
  26. UNASYN [Concomitant]
     Active Substance: AMPICILLIN SODIUM\SULBACTAM SODIUM
     Route: 065
     Dates: start: 20140411, end: 20140416

REACTIONS (4)
  - Respiratory failure [Unknown]
  - Pulmonary embolism [Recovered/Resolved]
  - Pneumonia [Recovered/Resolved]
  - Pulmonary infarction [Unknown]

NARRATIVE: CASE EVENT DATE: 20140410
